APPROVED DRUG PRODUCT: IODOHIPPURATE SODIUM I 131
Active Ingredient: IODOHIPPURATE SODIUM I-131
Strength: 0.2mCi/ML
Dosage Form/Route: INJECTABLE;INJECTION
Application: N017313 | Product #001
Applicant: PHARMALUCENCE INC
Approved: Approved Prior to Jan 1, 1982 | RLD: No | RS: No | Type: DISCN